FAERS Safety Report 4837302-0 (Version None)
Quarter: 2005Q4

REPORT INFORMATION
  Report Type: 
  Country: None (occurrence: None)
  Receive Date: 20051122
  Receipt Date: 20051107
  Transmission Date: 20060501
  Serious: Yes (Hospitalization)
  Sender: FDA-Public Use
  Company Number: 2005-01936

PATIENT
  Age: 68 Year
  Sex: Female

DRUGS (9)
  1. VELCADE [Suspect]
     Indication: MULTIPLE MYELOMA
     Dosage: 1.90 MG, INTRAVENOUS
     Route: 042
     Dates: start: 20050208, end: 20050715
  2. HYDROMORPH CONTIN (HYDROMORPHONE HYDROCHLORIDE) [Concomitant]
  3. CYCLOGYL (CYCLOPENTOLATE HYDROCHLORIDE) [Concomitant]
  4. PRED-FORTE (PREDNISOLONE ACETATE) [Concomitant]
  5. ATORVASTATIN CALCIUM [Concomitant]
  6. FUROSEMIDE [Concomitant]
  7. PROCHLORPERAZINE [Concomitant]
  8. OMEPRAZOLE [Concomitant]
  9. PAMIDRONATE DISODIUM [Concomitant]

REACTIONS (35)
  - ANGINA PECTORIS [None]
  - AORTIC VALVE DISEASE [None]
  - ATRIOVENTRICULAR BLOCK COMPLETE [None]
  - ATRIOVENTRICULAR BLOCK FIRST DEGREE [None]
  - AUTOIMMUNE DISORDER [None]
  - BLOOD ALBUMIN DECREASED [None]
  - BUNDLE BRANCH BLOCK LEFT [None]
  - BUNDLE BRANCH BLOCK RIGHT [None]
  - CARDIAC ARREST [None]
  - CARDIAC PACEMAKER INSERTION [None]
  - CARDIOMEGALY [None]
  - CELLULITIS [None]
  - HAEMORRHAGE [None]
  - HEADACHE [None]
  - HYPERSENSITIVITY [None]
  - HYPONATRAEMIA [None]
  - INFECTIVE MYOSITIS [None]
  - LEFT VENTRICULAR FAILURE [None]
  - LOCAL SWELLING [None]
  - MITRAL VALVE INCOMPETENCE [None]
  - NAUSEA [None]
  - NEUTROPHIL COUNT INCREASED [None]
  - OEDEMA PERIPHERAL [None]
  - OPPORTUNISTIC INFECTION [None]
  - PITTING OEDEMA [None]
  - PLEURAL EFFUSION [None]
  - PNEUMONITIS [None]
  - PULMONARY HYPERTENSION [None]
  - PULMONARY OEDEMA [None]
  - SIALOADENITIS [None]
  - SOFT TISSUE DISORDER [None]
  - SOFT TISSUE INFECTION [None]
  - TRICUSPID VALVE INCOMPETENCE [None]
  - TUBERCULOSIS [None]
  - WEIGHT DECREASED [None]
